FAERS Safety Report 7438027-8 (Version None)
Quarter: 2011Q2

REPORT INFORMATION
  Report Type: 
  Country: None (occurrence: None)
  Receive Date: 20110426
  Receipt Date: 20110420
  Transmission Date: 20111010
  Serious: Yes (Hospitalization, Other)
  Sender: FDA-Public Use
  Company Number: IT-GENZYME-FLUD-1001095

PATIENT
  Age: 73 Year
  Sex: Male

DRUGS (6)
  1. FLUDARA [Suspect]
     Indication: ACUTE MONOCYTIC LEUKAEMIA
     Dosage: UNK
     Route: 065
     Dates: start: 20060801, end: 20070101
  2. ARACYTIN [Suspect]
     Indication: ACUTE MYELOID LEUKAEMIA
  3. NOVANTRONE [Suspect]
     Indication: ACUTE MONOCYTIC LEUKAEMIA
     Dosage: UNK
     Route: 065
     Dates: start: 20060801, end: 20070101
  4. ARACYTIN [Suspect]
     Indication: ACUTE MONOCYTIC LEUKAEMIA
     Dosage: UNK
     Route: 065
     Dates: start: 20060801, end: 20070101
  5. NOVANTRONE [Suspect]
     Indication: ACUTE MYELOID LEUKAEMIA
  6. FLUDARA [Suspect]
     Indication: ACUTE MYELOID LEUKAEMIA

REACTIONS (4)
  - HEPATITIS B DNA ASSAY POSITIVE [None]
  - BLOOD BILIRUBIN INCREASED [None]
  - INTERNATIONAL NORMALISED RATIO INCREASED [None]
  - ALANINE AMINOTRANSFERASE INCREASED [None]
